FAERS Safety Report 18494546 (Version 1)
Quarter: 2020Q4

REPORT INFORMATION
  Report Type: Spontaneous
  Country: RU (occurrence: RU)
  Receive Date: 20201112
  Receipt Date: 20201112
  Transmission Date: 20210114
  Serious: Yes (Other)
  Sender: FDA-Public Use
  Company Number: RU-LUPIN PHARMACEUTICALS INC.-2020-08566

PATIENT
  Age: 52 Year
  Sex: Female

DRUGS (4)
  1. ADEMETIONINE [Suspect]
     Active Substance: ADEMETIONINE
     Indication: LEPROMATOUS LEPROSY
     Dosage: 2 DOSAGE FORM, QD
     Route: 065
  2. ACTOVEGIN [Suspect]
     Active Substance: BLOOD, BOVINE
     Indication: LEPROMATOUS LEPROSY
     Dosage: 5 MILLILITER, QD
     Route: 042
  3. RIFAMPIN. [Suspect]
     Active Substance: RIFAMPIN
     Indication: LEPROMATOUS LEPROSY
     Dosage: 600 MILLIGRAM, QD
     Route: 065
  4. DAPSONE. [Suspect]
     Active Substance: DAPSONE
     Indication: LEPROMATOUS LEPROSY
     Dosage: 100 MILLIGRAM, QD
     Route: 065

REACTIONS (1)
  - Condition aggravated [Recovered/Resolved]
